FAERS Safety Report 11217817 (Version 1)
Quarter: 2015Q2

REPORT INFORMATION
  Report Type: Spontaneous
  Country: US (occurrence: None)
  Receive Date: 20150623
  Receipt Date: 20150623
  Transmission Date: 20150821
  Serious: Yes (Other)
  Sender: FDA-Public Use
  Company Number: 9039997-2015-00067

PATIENT
  Age: 85 Year
  Sex: Female

DRUGS (1)
  1. LEVULAN KERASTICK [Suspect]
     Active Substance: AMINOLEVULINIC ACID HYDROCHLORIDE
     Indication: ACTINIC KERATOSIS
     Dosage: 20% SINGLE TOPICAL
     Route: 061
     Dates: start: 20150527

REACTIONS (2)
  - Vision blurred [None]
  - Eye burns [None]

NARRATIVE: CASE EVENT DATE: 20150528
